FAERS Safety Report 5327798-2 (Version None)
Quarter: 2007Q1

REPORT INFORMATION
  Report Type: 
  Country: None (occurrence: None)
  Receive Date: 20070226
  Receipt Date: 20061031
  Transmission Date: 20070707
  Serious: Yes (Other)
  Sender: FDA-Public Use
  Company Number: WAES 0611USA01035

PATIENT
  Sex: Male

DRUGS (2)
  1. VYTORIN [Suspect]
     Indication: LIPIDS INCREASED
     Dosage: 10-40 MG/DAILY/PO
     Route: 048
  2. VYTORIN [Suspect]
     Indication: LIPIDS INCREASED
     Dosage: 10-80 MG/DAILY/PO
     Route: 048

REACTIONS (1)
  - RHABDOMYOLYSIS [None]
